FAERS Safety Report 9864981 (Version 2)
Quarter: 2014Q1

REPORT INFORMATION
  Report Type: Spontaneous
  Country: US (occurrence: US)
  Receive Date: 20140203
  Receipt Date: 20140203
  Transmission Date: 20141002
  Serious: No
  Sender: FDA-Public Use
  Company Number: US-AMGEN-USASP2014004531

PATIENT
  Age: 71 Year
  Sex: Female

DRUGS (1)
  1. ENBREL [Suspect]
     Indication: RHEUMATOID ARTHRITIS
     Dosage: 50 MG, QWK
     Route: 058
     Dates: start: 201301

REACTIONS (4)
  - Endodontic procedure [Recovered/Resolved]
  - Dental prosthesis placement [Recovered/Resolved]
  - Sinus headache [Not Recovered/Not Resolved]
  - Injection site pain [Not Recovered/Not Resolved]
